FAERS Safety Report 20920577 (Version 1)
Quarter: 2022Q2

REPORT INFORMATION
  Report Type: Spontaneous
  Country: US (occurrence: None)
  Receive Date: 20220606
  Receipt Date: 20220606
  Transmission Date: 20220721
  Serious: Yes (Hospitalization, Other)
  Sender: FDA-Public Use
  Company Number: None

PATIENT
  Age: 69 Year
  Sex: Male
  Weight: 86 kg

DRUGS (2)
  1. PIPERACILLIN SODIUM\TAZOBACTAM SODIUM [Suspect]
     Active Substance: PIPERACILLIN SODIUM\TAZOBACTAM SODIUM
     Indication: Pain
     Dosage: 3.375 GM ONCE IV?
     Route: 042
     Dates: start: 20220319, end: 20220319
  2. PIPERACILLIN SODIUM\TAZOBACTAM SODIUM [Suspect]
     Active Substance: PIPERACILLIN SODIUM\TAZOBACTAM SODIUM
     Indication: Infection

REACTIONS (11)
  - Dizziness [None]
  - Syncope [None]
  - Anxiety [None]
  - Tachycardia [None]
  - Tremor [None]
  - Hypotension [None]
  - Pallor [None]
  - Hyperhidrosis [None]
  - Urinary incontinence [None]
  - Atrial fibrillation [None]
  - Asthenia [None]

NARRATIVE: CASE EVENT DATE: 20220319
